FAERS Safety Report 9659710 (Version 1)
Quarter: 2013Q4

REPORT INFORMATION
  Report Type: Spontaneous
  Country: US (occurrence: None)
  Receive Date: 20131029
  Receipt Date: 20131029
  Transmission Date: 20140711
  Serious: Yes (Other)
  Sender: FDA-Public Use
  Company Number: 2013SA107082

PATIENT
  Age: 50 Year
  Sex: Female

DRUGS (1)
  1. CAPZASIN HP CREME / UNKNOWN / UNKNOWN [Suspect]
     Indication: ARTHRITIS
     Dates: start: 20131020

REACTIONS (4)
  - Application site pain [None]
  - Application site pain [None]
  - Drug ineffective [None]
  - Product quality issue [None]
